FAERS Safety Report 5735543-1 (Version None)
Quarter: 2008Q2

REPORT INFORMATION
  Report Type: 
  Country: None (occurrence: None)
  Receive Date: 20080512
  Receipt Date: 20080506
  Transmission Date: 20081010
  Serious: Yes (Other)
  Sender: FDA-Public Use
  Company Number: US-BOEHRINGER INGELHEIM GMBH, GERMANY-2008-BP-07046RO

PATIENT
  Age: 36 Year
  Sex: Male

DRUGS (3)
  1. LIDOCAINE [Suspect]
     Indication: DERMATITIS PAPILLARIS CAPILLITII
  2. KENALOG [Suspect]
     Indication: DERMATITIS PAPILLARIS CAPILLITII
  3. EPINEPHRINE [Suspect]
     Indication: DERMATITIS PAPILLARIS CAPILLITII

REACTIONS (1)
  - TYPE I HYPERSENSITIVITY [None]
